FAERS Safety Report 6568030-1 (Version None)
Quarter: 2010Q1

REPORT INFORMATION
  Report Type: 
  Country: None (occurrence: None)
  Receive Date: 20100203
  Receipt Date: 20100119
  Transmission Date: 20100710
  Serious: Yes (Other)
  Sender: FDA-Public Use
  Company Number: GB-BAYER-201013524GPV

PATIENT
  Age: 51 Year
  Sex: Male

DRUGS (4)
  1. FLUDARABINE [Suspect]
     Indication: STEM CELL TRANSPLANT
  2. ALEMTUZUMAB [Suspect]
     Indication: STEM CELL TRANSPLANT
  3. BUSULFAN [Suspect]
     Indication: STEM CELL TRANSPLANT
     Route: 042
  4. CYCLOSPORINE [Concomitant]
     Indication: PROPHYLAXIS AGAINST GRAFT VERSUS HOST DISEASE

REACTIONS (1)
  - PEMPHIGOID [None]
